FAERS Safety Report 6325162-0 (Version None)
Quarter: 2009Q3

REPORT INFORMATION
  Report Type: 
  Country: None (occurrence: None)
  Receive Date: 20090824
  Receipt Date: 20090817
  Transmission Date: 20100115
  Serious: Yes (Hospitalization)
  Sender: FDA-Public Use
  Company Number: PHHY2009PT33788

PATIENT
  Sex: Female

DRUGS (6)
  1. VOLTAREN [Suspect]
     Indication: PAIN
     Dosage: 150MG DAILY
     Route: 048
     Dates: start: 20090621, end: 20090628
  2. CATALIP [Interacting]
     Indication: DYSLIPIDAEMIA
     Dosage: 267MG DAILY
     Route: 048
     Dates: start: 20090603, end: 20090628
  3. PERINDOPRIL [Concomitant]
     Indication: HYPERTENSION
     Dosage: 2.5 MG DAILY
     Route: 048
     Dates: start: 20090301
  4. PYRIDOSTIGMINE BROMIDE [Concomitant]
     Indication: MYASTHENIA GRAVIS
     Dosage: 240MG DAILY
     Route: 048
     Dates: start: 20080801
  5. PREDNISOLONE [Concomitant]
     Indication: MYASTHENIA GRAVIS
     Dosage: 30MG DAILY
     Route: 048
     Dates: start: 20080101
  6. OMEPRAZOLE [Concomitant]
     Indication: PROPHYLAXIS AGAINST GASTROINTESTINAL ULCER
     Dosage: 20MG DAILY
     Route: 048
     Dates: start: 20080801

REACTIONS (9)
  - ACHOLIA [None]
  - BLOOD CHOLESTEROL INCREASED [None]
  - BLOOD TRIGLYCERIDES INCREASED [None]
  - CHOLURIA [None]
  - DRUG INTERACTION [None]
  - HEPATITIS TOXIC [None]
  - JAUNDICE [None]
  - LOW DENSITY LIPOPROTEIN INCREASED [None]
  - PRURITUS [None]
